FAERS Safety Report 9483662 (Version 2)
Quarter: 2013Q3

REPORT INFORMATION
  Report Type: Spontaneous
  Country: CA (occurrence: CA)
  Receive Date: 20130828
  Receipt Date: 20130828
  Transmission Date: 20140515
  Serious: Yes (Hospitalization)
  Sender: FDA-Public Use
  Company Number: CA-AMGEN-KDL300572

PATIENT
  Age: 60 Year
  Sex: Female
  Weight: 70.4 kg

DRUGS (11)
  1. ENBREL [Suspect]
     Indication: RHEUMATOID ARTHRITIS
     Dosage: UNK UNK, QWK
     Route: 058
     Dates: start: 20030910
  2. METHOTREXATE [Concomitant]
     Dosage: UNK UNK, UNK
  3. PREDNISONE [Concomitant]
     Dosage: UNK UNK, UNK
  4. FOLIC ACID [Concomitant]
     Dosage: UNK UNK, UNK
  5. SIMVASTATIN [Concomitant]
     Dosage: UNK UNK, UNK
  6. ACETYLSALICYLIC ACID [Concomitant]
     Dosage: UNK UNK, UNK
  7. CALCIUM CARBONATE [Concomitant]
     Dosage: UNK UNK, UNK
  8. DOMPERIDONE [Concomitant]
     Dosage: UNK UNK, UNK
  9. IRBESARTAN [Concomitant]
     Dosage: UNK UNK, UNK
  10. ESOMEPRAZOLE MAGNESIUM [Concomitant]
     Dosage: UNK UNK, UNK
  11. ALENDRONATE SODIUM [Concomitant]
     Dosage: UNK UNK, UNK

REACTIONS (5)
  - Listeriosis [Recovering/Resolving]
  - Loss of consciousness [Unknown]
  - Diarrhoea [Not Recovered/Not Resolved]
  - Blood culture positive [Unknown]
  - Pyrexia [Unknown]
